FAERS Safety Report 6692018-3 (Version None)
Quarter: 2010Q2

REPORT INFORMATION
  Report Type: 
  Country: None (occurrence: None)
  Receive Date: 20100419
  Receipt Date: 20100405
  Transmission Date: 20101027
  Serious: Yes (Hospitalization)
  Sender: FDA-Public Use
  Company Number: 7000312

PATIENT
  Age: 48 Year
  Sex: Male

DRUGS (2)
  1. REBIF [Suspect]
     Indication: RELAPSING-REMITTING MULTIPLE SCLEROSIS
     Dosage: 44 MCG , 3 IN 1 WK
     Dates: start: 20011218
  2. MANTIDAN (AMANTADINE HYDROCHLORIDE) [Concomitant]

REACTIONS (6)
  - CHOKING [None]
  - MOVEMENT DISORDER [None]
  - MUSCLE SPASMS [None]
  - SPEECH DISORDER [None]
  - TREATMENT FAILURE [None]
  - VISUAL IMPAIRMENT [None]
